FAERS Safety Report 8556093-3 (Version None)
Quarter: 2012Q3

REPORT INFORMATION
  Report Type: 
  Country: None (occurrence: None)
  Receive Date: 20120801
  Receipt Date: 20120723
  Transmission Date: 20120928
  Serious: Yes (Other)
  Sender: FDA-Public Use
  Company Number: US-JNJFOC-20120401247

PATIENT
  Sex: Female

DRUGS (5)
  1. CYMBALTA [Concomitant]
     Indication: DEPRESSION
     Route: 065
  2. XOPENEX [Concomitant]
     Indication: ASTHMA
     Route: 065
  3. LORAZEPAM [Concomitant]
     Indication: ANXIETY
     Route: 065
  4. SEROQUEL [Concomitant]
     Indication: SLEEP DISORDER
     Route: 065
  5. REMICADE [Suspect]
     Indication: PRODUCT USED FOR UNKNOWN INDICATION
     Route: 042
     Dates: end: 20091229

REACTIONS (11)
  - EAR INFECTION [None]
  - LEUKOCYTOSIS [None]
  - ALOPECIA [None]
  - SINUSITIS [None]
  - DERMATITIS [None]
  - ONYCHOMADESIS [None]
  - STAPHYLOCOCCAL INFECTION [None]
  - PSORIASIS [None]
  - PAIN [None]
  - ECZEMA [None]
  - PSORIATIC ARTHROPATHY [None]
